FAERS Safety Report 7669386-9 (Version None)
Quarter: 2011Q3

REPORT INFORMATION
  Report Type: 
  Country: None (occurrence: None)
  Receive Date: 20110808
  Receipt Date: 20100712
  Transmission Date: 20111222
  Serious: Yes (Other)
  Sender: FDA-Public Use
  Company Number: US-BAYER-200937766NA

PATIENT
  Age: 30 Year
  Sex: Female
  Weight: 104.31 kg

DRUGS (9)
  1. ATENOLOL [Concomitant]
     Indication: SINUS TACHYCARDIA
     Dosage: UNK
     Dates: start: 20060101
  2. LEVOTHROID [Concomitant]
     Indication: AUTOIMMUNE THYROIDITIS
     Dosage: UNK
  3. IMITREX DILADID [Concomitant]
     Indication: MIGRAINE
     Dosage: UNK
     Dates: start: 20020101
  4. CYTOMEL [Concomitant]
     Indication: AUTOIMMUNE THYROIDITIS
     Dosage: UNK
  5. YASMIN [Suspect]
     Indication: CONTRACEPTION
     Dosage: 1 TAB/DAY
     Route: 048
  6. YAZ [Suspect]
     Indication: PRODUCT USED FOR UNKNOWN INDICATION
     Dosage: UNK
     Dates: start: 20080401, end: 20081101
  7. ETODOLAC [Concomitant]
  8. SUBOXONE [Concomitant]
     Indication: DRUG DEPENDENCE
     Dosage: UNK
     Dates: start: 20070101
  9. IBUPROFEN [Concomitant]

REACTIONS (7)
  - PAIN [None]
  - MUSCULOSKELETAL CHEST PAIN [None]
  - PULMONARY EMBOLISM [None]
  - MUSCLE SPASMS [None]
  - CHEST PAIN [None]
  - PULMONARY INFARCTION [None]
  - OEDEMA PERIPHERAL [None]
